FAERS Safety Report 5446044-2 (Version None)
Quarter: 2007Q3

REPORT INFORMATION
  Report Type: 
  Country: None (occurrence: None)
  Receive Date: 20070907
  Receipt Date: 20070828
  Transmission Date: 20080115
  Serious: Yes (Disabling)
  Sender: FDA-Public Use
  Company Number: GB-NOVOPROD-266989

PATIENT
  Age: 42 Year
  Sex: Female
  Weight: 80 kg

DRUGS (4)
  1. NOVORAPID [Suspect]
     Indication: DIABETES MELLITUS
     Dosage: 8 IU, TID
     Route: 030
     Dates: start: 20070609, end: 20070618
  2. METFORMIN HCL [Concomitant]
     Dosage: 500 MG, QID
     Route: 048
     Dates: start: 20030101
  3. PERINDOPRIL ERBUMINE [Concomitant]
     Dosage: 4 MG, QD
     Route: 048
     Dates: start: 20030101
  4. SIMVASTATIN [Concomitant]
     Dosage: 40 MG, QD
     Route: 048
     Dates: start: 20050101

REACTIONS (1)
  - VISION BLURRED [None]
